FAERS Safety Report 5955411-X (Version None)
Quarter: 2008Q4

REPORT INFORMATION
  Report Type: 
  Country: None (occurrence: None)
  Receive Date: 20081113
  Receipt Date: 20081104
  Transmission Date: 20090506
  Serious: Yes (Life-Threatening)
  Sender: FDA-Public Use
  Company Number: IDA-00143

PATIENT
  Age: 44 Year
  Sex: Female

DRUGS (2)
  1. INDERAL [Suspect]
     Indication: ATRIAL FIBRILLATION
     Dosage: 2 MG BID / ,INTRAVENOUS DRIPFORMULATION: INJECTION/ORAL TABLET
     Route: 042
     Dates: start: 20080317, end: 20080317
  2. INDERAL [Suspect]
     Indication: ATRIAL FIBRILLATION
     Dosage: 2 MG BID / ,INTRAVENOUS DRIPFORMULATION: INJECTION/ORAL TABLET
     Route: 042
     Dates: start: 20080317, end: 20080317

REACTIONS (10)
  - CARDIO-RESPIRATORY ARREST [None]
  - COMMUNICATION DISORDER [None]
  - CONVULSION [None]
  - DEPRESSED LEVEL OF CONSCIOUSNESS [None]
  - DIALYSIS [None]
  - DISEASE PROGRESSION [None]
  - HYPOXIC ENCEPHALOPATHY [None]
  - LOSS OF CONSCIOUSNESS [None]
  - MULTI-ORGAN FAILURE [None]
  - THYROTOXIC CRISIS [None]
